FAERS Safety Report 23901445 (Version 1)
Quarter: 2024Q2

REPORT INFORMATION
  Report Type: Spontaneous
  Country: US (occurrence: None)
  Receive Date: 20240526
  Receipt Date: 20240526
  Transmission Date: 20240715
  Serious: No
  Sender: FDA-Public Use
  Company Number: US-ROCHE-3530136

PATIENT
  Age: 52 Year
  Sex: Male
  Weight: 93.07 kg

DRUGS (9)
  1. OCREVUS [Suspect]
     Active Substance: OCRELIZUMAB
     Indication: Primary progressive multiple sclerosis
     Dosage: 600 MG IN 500 ML OF NORMAL SALINE ;ONGOING: YES
     Route: 042
     Dates: start: 201711
  2. RITUXAN [Suspect]
     Active Substance: RITUXIMAB
     Indication: Primary progressive multiple sclerosis
     Dosage: ONE INFUSION ;ONGOING: NO
     Route: 041
  3. GABAPENTIN [Concomitant]
     Active Substance: GABAPENTIN
  4. DALFAMPRIDINE [Concomitant]
     Active Substance: DALFAMPRIDINE
  5. BACLOFEN [Concomitant]
     Active Substance: BACLOFEN
  6. OXYBUTYNIN [Concomitant]
     Active Substance: OXYBUTYNIN\OXYBUTYNIN CHLORIDE
  7. LACTULOSE [Concomitant]
     Active Substance: LACTULOSE
  8. MELOXICAM [Concomitant]
     Active Substance: MELOXICAM
  9. BOTOX [Concomitant]
     Active Substance: ONABOTULINUMTOXINA

REACTIONS (6)
  - Fall [Unknown]
  - Head injury [Unknown]
  - Frustration tolerance decreased [Not Recovered/Not Resolved]
  - Bladder disorder [Unknown]
  - Gastrointestinal disorder [Unknown]
  - Spinal pain [Unknown]

NARRATIVE: CASE EVENT DATE: 20211201
